FAERS Safety Report 9169591 (Version 1)
Quarter: 2013Q1

REPORT INFORMATION
  Report Type: Spontaneous
  Country: US (occurrence: US)
  Receive Date: 20130318
  Receipt Date: 20130318
  Transmission Date: 20140127
  Serious: Yes (Other)
  Sender: FDA-Public Use
  Company Number: US-PFIZER INC-2013089124

PATIENT
  Age: 73 Year
  Sex: Female
  Weight: 66.21 kg

DRUGS (4)
  1. LIPITOR [Suspect]
     Indication: BLOOD CHOLESTEROL INCREASED
     Dosage: 40 MG, DAILY
     Route: 048
  2. LISINOPRIL [Suspect]
     Indication: HYPERTENSION
     Dosage: 10 MG, UNK
  3. METFORMIN HCL [Suspect]
     Indication: DIABETES MELLITUS
     Dosage: UNK, 2X/DAY
  4. NIACIN [Suspect]
     Dosage: 500 MG, UNK

REACTIONS (4)
  - Diabetes mellitus [Unknown]
  - Hypersensitivity [Unknown]
  - Hypotension [Unknown]
  - Drug ineffective [Unknown]
